FAERS Safety Report 6230209-6 (Version None)
Quarter: 2009Q2

REPORT INFORMATION
  Report Type: 
  Country: None (occurrence: None)
  Receive Date: 20090615
  Receipt Date: 20090605
  Transmission Date: 20091009
  Serious: Yes (Hospitalization, Other)
  Sender: FDA-Public Use
  Company Number: US-ABBOTT-09P-163-0578437-00

PATIENT
  Sex: Female
  Weight: 81.72 kg

DRUGS (10)
  1. HUMIRA [Suspect]
     Indication: RHEUMATOID ARTHRITIS
     Route: 058
     Dates: start: 20080417, end: 20090422
  2. HUMIRA [Suspect]
     Route: 058
     Dates: start: 20090605
  3. CELEBREX [Concomitant]
     Indication: RHEUMATOID ARTHRITIS
     Route: 048
  4. METHOTREXATE [Concomitant]
     Indication: RHEUMATOID ARTHRITIS
     Route: 048
  5. LEVOTHYROXINE SODIUM [Concomitant]
     Indication: THYROIDECTOMY
     Route: 048
  6. FOLIC ACID [Concomitant]
     Indication: VITAMIN SUPPLEMENTATION
     Route: 048
  7. METOPROLOL SUCCINATE [Concomitant]
     Indication: HYPERTENSION
     Route: 048
  8. SPIRONOLACTONE [Concomitant]
     Indication: HYPERTENSION
     Route: 048
  9. CENTRUM SILVER [Concomitant]
     Indication: VITAMIN SUPPLEMENTATION
     Route: 048
  10. CALTRATE [Concomitant]
     Indication: MINERAL SUPPLEMENTATION
     Route: 048

REACTIONS (8)
  - AORTIC ANEURYSM [None]
  - DRUG DOSE OMISSION [None]
  - DYSPNOEA [None]
  - INJECTION SITE ERYTHEMA [None]
  - INJECTION SITE HAEMATOMA [None]
  - INJECTION SITE SWELLING [None]
  - NASOPHARYNGITIS [None]
  - PNEUMONIA [None]
